FAERS Safety Report 15843436 (Version 1)
Quarter: 2019Q1

REPORT INFORMATION
  Report Type: Spontaneous
  Country: FR (occurrence: FR)
  Receive Date: 20190118
  Receipt Date: 20190118
  Transmission Date: 20190417
  Serious: Yes (Hospitalization, Other)
  Sender: FDA-Public Use
  Company Number: FR-BRISTOL-MYERS SQUIBB COMPANY-BMS-2019-003315

PATIENT
  Age: 92 Year
  Sex: Female
  Weight: 50 kg

DRUGS (4)
  1. ATORVASTATINE ARROW [Suspect]
     Active Substance: ATORVASTATIN
     Indication: HYPERCHOLESTEROLAEMIA
     Dosage: 40 MG, 1 DAY (FREQUENCY UNSPECIFIED)
     Route: 048
     Dates: start: 201809, end: 20181102
  2. RAMIPRIL MYLAN [Suspect]
     Active Substance: RAMIPRIL
     Indication: HYPERTENSION
     Dosage: 1.25 MG, 1 DAY (FREQEUNCY UNSPECIFIED)
     Route: 048
     Dates: start: 2018, end: 20181102
  3. ELIQUIS [Suspect]
     Active Substance: APIXABAN
     Indication: CEREBROVASCULAR ACCIDENT PROPHYLAXIS
     Dosage: 5 MG, 1 DAY (FREQEUNCY UNSPECIFIED)
     Route: 048
     Dates: start: 2018, end: 20181102
  4. LANSOPRAZOLE MYLAN [Suspect]
     Active Substance: LANSOPRAZOLE
     Indication: GASTROOESOPHAGEAL REFLUX DISEASE
     Dosage: 15 MG, 1 DAY (FREQUENCY UNSPECIFIED)
     Route: 065
     Dates: start: 20180908, end: 20181102

REACTIONS (1)
  - Agranulocytosis [Recovered/Resolved]

NARRATIVE: CASE EVENT DATE: 20181101
